FAERS Safety Report 10626514 (Version 1)
Quarter: 2014Q4

REPORT INFORMATION
  Report Type: Spontaneous
  Country: US (occurrence: None)
  Receive Date: 20141121
  Receipt Date: 20141121
  Transmission Date: 20150529
  Serious: No
  Sender: FDA-Public Use
  Company Number: 163-10004-14065041

PATIENT
  Age: 58 Year
  Sex: Female

DRUGS (7)
  1. VITAMIN D(ERGOCALCIFEROL)(UKNOWN) [Concomitant]
  2. VITAMIN [Concomitant]
     Active Substance: VITAMINS
  3. HYDROCODONE/ACETAMINOPHEN(REMEDINE/01204101/) [Concomitant]
  4. FOLIC ACID(FOLIC ACID [Concomitant]
  5. OTEZLA [Suspect]
     Active Substance: APREMILAST
     Indication: PSORIATIC ARTHROPATHY
     Route: 048
     Dates: start: 20140616
  6. HYDROCODONE/ACETAMINOPHEN (REMEDEINE/01204101 [Concomitant]
  7. VITAMIN D [Concomitant]
     Active Substance: CHOLECALCIFEROL

REACTIONS (1)
  - Nausea [None]
